FAERS Safety Report 22010682 (Version 1)
Quarter: 2023Q1

REPORT INFORMATION
  Report Type: Spontaneous
  Country: US (occurrence: US)
  Receive Date: 20230220
  Receipt Date: 20230220
  Transmission Date: 20230418
  Serious: Yes (Other)
  Sender: FDA-Public Use
  Company Number: US-BAYER-2023A015721

PATIENT
  Age: 86 Year
  Sex: Female

DRUGS (3)
  1. ASPIRIN [Interacting]
     Active Substance: ASPIRIN
  2. HEPARIN [Interacting]
     Active Substance: HEPARIN SODIUM
  3. PANTOPRAZOLE [Concomitant]
     Active Substance: PANTOPRAZOLE
     Indication: Prophylaxis against gastrointestinal ulcer

REACTIONS (7)
  - Labelled drug-drug interaction medication error [None]
  - Oesophageal intramural haematoma [None]
  - Haemothorax [None]
  - Haematemesis [None]
  - Haemorrhage [None]
  - Oesophageal disorder [None]
  - Haemoglobin decreased [None]
